FAERS Safety Report 8405364-X (Version None)
Quarter: 2012Q2

REPORT INFORMATION
  Report Type: 
  Country: None (occurrence: None)
  Receive Date: 20120604
  Receipt Date: 20120523
  Transmission Date: 20120825
  Serious: Yes (Hospitalization, Other)
  Sender: FDA-Public Use
  Company Number: GB-AMGEN-GBRSP2012033658

PATIENT
  Age: 74 Year
  Sex: Male

DRUGS (17)
  1. FOLIC ACID [Concomitant]
     Dosage: UNK
  2. FERROUS SULFATE TAB [Concomitant]
     Dosage: UNK
  3. ESOMEPRAZOLE MAGNESIUM [Concomitant]
     Dosage: UNK UNK, UNK
  4. CALCIUM CARBONATE [Concomitant]
     Dosage: UNK
  5. SPIRONOLACTONE [Concomitant]
     Dosage: UNK
  6. DIGOXIN [Concomitant]
     Dosage: UNK
  7. ALENDRONATE SODIUM [Concomitant]
     Dosage: UNK
  8. CLOPIDOGREL [Concomitant]
     Dosage: UNK
  9. RAMIPRIL [Concomitant]
     Dosage: UNK
  10. DIHYDROCODEINE BITARTRATE INJ [Concomitant]
     Dosage: UNK
  11. CO-DYDRAMOL [Concomitant]
     Dosage: UNK
  12. PREDNISOLONE [Concomitant]
     Dosage: UNK
  13. INDOMETHACIN [Concomitant]
     Dosage: UNK
  14. BISOPROLOL FUMARATE [Concomitant]
     Dosage: UNK
  15. ENBREL [Suspect]
     Indication: RHEUMATOID ARTHRITIS
     Dosage: 50MG
     Route: 058
     Dates: start: 20120223, end: 20120327
  16. SULFASALAZINE [Concomitant]
     Dosage: UNK
  17. HYDROXYCHLOROQUINE SULFATE [Concomitant]
     Dosage: UNK

REACTIONS (5)
  - EMPHYSEMA [None]
  - VASCULITIS [None]
  - PULMONARY FIBROSIS [None]
  - DYSPHONIA [None]
  - DYSPNOEA [None]
